FAERS Safety Report 15856383 (Version 2)
Quarter: 2019Q2

REPORT INFORMATION
  Report Type: Spontaneous
  Country: DE (occurrence: DE)
  Receive Date: 20190123
  Receipt Date: 20190405
  Transmission Date: 20190711
  Serious: No
  Sender: FDA-Public Use
  Company Number: DE-UCBSA-2019002663

PATIENT
  Age: 68 Year
  Sex: Male

DRUGS (1)
  1. PROSTAVASIN [Suspect]
     Active Substance: ALPROSTADIL ALFADEX
     Indication: PRODUCT USED FOR UNKNOWN INDICATION
     Dosage: UNK
     Dates: start: 201806, end: 201807

REACTIONS (1)
  - Contraindicated product administered [Unknown]
